FAERS Safety Report 7002247-7 (Version None)
Quarter: 2010Q3

REPORT INFORMATION
  Report Type: 
  Country: None (occurrence: None)
  Receive Date: 20100920
  Receipt Date: 20100722
  Transmission Date: 20110219
  Serious: No
  Sender: FDA-Public Use
  Company Number: US-ASTRAZENECA-2010SE34244

PATIENT
  Sex: Female
  Weight: 79.4 kg

DRUGS (2)
  1. SEROQUEL [Suspect]
     Dosage: 250 MG HS AND 150 MG IN THE MORNING
     Route: 048
     Dates: end: 20100721
  2. SEROQUEL [Suspect]
     Route: 048
     Dates: start: 20100722

REACTIONS (5)
  - DELUSION [None]
  - DEMENTIA ALZHEIMER'S TYPE [None]
  - HALLUCINATION [None]
  - PARKINSON'S DISEASE [None]
  - WEIGHT INCREASED [None]
